FAERS Safety Report 21966596 (Version 4)
Quarter: 2023Q1

REPORT INFORMATION
  Report Type: Spontaneous
  Country: JP (occurrence: JP)
  Receive Date: 20230208
  Receipt Date: 20230307
  Transmission Date: 20230418
  Serious: No
  Sender: FDA-Public Use
  Company Number: JP-UCBJ-CD202301387UCBPHAPROD

PATIENT
  Age: 5 Year
  Sex: Female

DRUGS (1)
  1. LEVETIRACETAM [Suspect]
     Active Substance: LEVETIRACETAM
     Indication: Partial seizures
     Dosage: INJECTION
     Route: 041

REACTIONS (1)
  - Drug ineffective [Unknown]
